FAERS Safety Report 6710766-3 (Version None)
Quarter: 2010Q2

REPORT INFORMATION
  Report Type: 
  Country: None (occurrence: None)
  Receive Date: 20100505
  Receipt Date: 20100430
  Transmission Date: 20101027
  Serious: Yes (Other)
  Sender: FDA-Public Use
  Company Number: FI-BRISTOL-MYERS SQUIBB COMPANY-14808711

PATIENT
  Age: 55 Year
  Sex: Female

DRUGS (9)
  1. ORENCIA [Suspect]
     Dosage: ALSO ON 04SEP09; AS INFUSION
     Dates: start: 20080903
  2. KLEXANE [Concomitant]
     Indication: DEEP VEIN THROMBOSIS
  3. CALCICHEW D3 [Concomitant]
  4. NEXIUM [Concomitant]
  5. PANADOL [Concomitant]
  6. VOLTAREN [Concomitant]
  7. RETARDIN [Concomitant]
  8. COHEMIN DEPOT [Concomitant]
  9. ZOMETA [Concomitant]

REACTIONS (1)
  - TRANSIENT ISCHAEMIC ATTACK [None]
